FAERS Safety Report 23499452 (Version 1)
Quarter: 2024Q1

REPORT INFORMATION
  Report Type: Spontaneous
  Country: US (occurrence: US)
  Receive Date: 20240208
  Receipt Date: 20240208
  Transmission Date: 20240410
  Serious: Yes (Death, Hospitalization, Other)
  Sender: FDA-Public Use
  Company Number: US-CADILA HEALTHCARE LIMITED-US-ZYDUS-102957

PATIENT

DRUGS (1)
  1. SEVELAMER [Suspect]
     Active Substance: SEVELAMER
     Indication: Hyperphosphataemia
     Dosage: UNK
     Dates: start: 20221013

REACTIONS (5)
  - Acute lung injury [Fatal]
  - Pulmonary alveolar haemorrhage [Fatal]
  - Aneurysm ruptured [Fatal]
  - Aorto-oesophageal fistula [Fatal]
  - Gastrointestinal necrosis [Unknown]
